FAERS Safety Report 8889320 (Version 1)
Quarter: 2012Q4

REPORT INFORMATION
  Report Type: 
  Country: US (occurrence: US)
  Receive Date: 20121106
  Receipt Date: 20121106
  Transmission Date: 20130627
  Serious: Yes (Death)
  Sender: FDA-Public Use
  Company Number: US-SHIRE-ALL1-2012-05406

PATIENT
  Age: 82 None
  Sex: Female

DRUGS (1)
  1. FOSRENOL [Suspect]
     Indication: RENAL FAILURE CHRONIC
     Dosage: 2000 mg, Other (two 1000 mg tablets six times daily)
     Route: 048
     Dates: start: 201208

REACTIONS (2)
  - Death [Fatal]
  - Overdose [Unknown]
